FAERS Safety Report 6359175-X (Version None)
Quarter: 2009Q3

REPORT INFORMATION
  Report Type: 
  Country: None (occurrence: None)
  Receive Date: 20090917
  Receipt Date: 20090910
  Transmission Date: 20100115
  Serious: Yes (Hospitalization)
  Sender: FDA-Public Use
  Company Number: TW-JNJFOC-20090903491

PATIENT
  Age: 26 Year
  Sex: Male

DRUGS (3)
  1. RISPERIDONE [Suspect]
     Route: 065
  2. RISPERIDONE [Suspect]
     Indication: SCHIZOPHRENIA, PARANOID TYPE
     Route: 065
  3. GINKGO BILOBA [Interacting]
     Indication: TINNITUS
     Route: 065

REACTIONS (2)
  - DRUG INTERACTION [None]
  - PRIAPISM [None]
